FAERS Safety Report 6746323-2 (Version None)
Quarter: 2010Q2

REPORT INFORMATION
  Report Type: 
  Country: None (occurrence: None)
  Receive Date: 20100528
  Receipt Date: 20100517
  Transmission Date: 20101027
  Serious: Yes (Other)
  Sender: FDA-Public Use
  Company Number: US-PFIZER INC-2010062544

PATIENT
  Sex: Female
  Weight: 117.91 kg

DRUGS (6)
  1. CHANTIX [Suspect]
     Indication: SMOKING CESSATION THERAPY
     Dosage: 0.5 MG, 1X/DAY
     Route: 048
     Dates: start: 20100401
  2. PAXIL [Concomitant]
     Indication: DEPRESSION
     Dosage: UNK
  3. XANAX [Concomitant]
     Indication: ANXIETY
     Dosage: UNK
  4. SYNTHROID [Concomitant]
     Indication: HYPOTHYROIDISM
     Dosage: UNK
  5. LIPITOR [Concomitant]
     Indication: BLOOD CHOLESTEROL INCREASED
     Dosage: UNK
  6. LISINOPRIL [Concomitant]
     Indication: HYPERTENSION
     Dosage: UNK

REACTIONS (4)
  - FEELING ABNORMAL [None]
  - HYPERSOMNIA [None]
  - NIGHTMARE [None]
  - PARANOIA [None]
